FAERS Safety Report 18777818 (Version 1)
Quarter: 2021Q1

REPORT INFORMATION
  Report Type: Spontaneous
  Country: US (occurrence: US)
  Receive Date: 20210122
  Receipt Date: 20210122
  Transmission Date: 20210419
  Serious: No
  Sender: FDA-Public Use
  Company Number: 2020SGN04184

PATIENT
  Sex: Male

DRUGS (2)
  1. XELODA [Suspect]
     Active Substance: CAPECITABINE
     Indication: BREAST CANCER MALE
     Dosage: UNK
  2. TUKYSA [Suspect]
     Active Substance: TUCATINIB
     Indication: BREAST CANCER MALE
     Dosage: 300 MG, QD
     Dates: start: 20200910

REACTIONS (19)
  - Skin exfoliation [Unknown]
  - Hypersomnia [Recovering/Resolving]
  - Hypotension [Unknown]
  - Palmar-plantar erythrodysaesthesia syndrome [Unknown]
  - Decreased appetite [Unknown]
  - Rash [Unknown]
  - Pruritus [Unknown]
  - Adverse drug reaction [Unknown]
  - Skin ulcer [Unknown]
  - Lymphoedema [Unknown]
  - Muscular weakness [Unknown]
  - Rash macular [Unknown]
  - Diarrhoea [Unknown]
  - Skin discolouration [Unknown]
  - Insomnia [Unknown]
  - Fatigue [Unknown]
  - Erythema [Unknown]
  - Gait disturbance [Unknown]
  - Dehydration [Unknown]
